FAERS Safety Report 18294247 (Version 1)
Quarter: 2020Q3

REPORT INFORMATION
  Report Type: Spontaneous
  Country: FR (occurrence: FR)
  Receive Date: 20200921
  Receipt Date: 20200921
  Transmission Date: 20201103
  Serious: Yes (Hospitalization)
  Sender: FDA-Public Use
  Company Number: FR-AMGEN-FRASP2020149413

PATIENT
  Age: 31 Year
  Sex: Male
  Weight: 77.5 kg

DRUGS (4)
  1. METHOTREXATE. [Suspect]
     Active Substance: METHOTREXATE
     Indication: RETINAL VASCULITIS
     Dosage: 15 MILLIGRAM, QWK
     Route: 048
     Dates: start: 20200702, end: 20200725
  2. SPECIAFOLDINE [Concomitant]
     Active Substance: FOLIC ACID
     Indication: VITAMIN SUPPLEMENTATION
     Dosage: 1 DOSAGE FORM, QWK
     Route: 048
     Dates: start: 202007, end: 20200725
  3. ADALIMUMAB [Suspect]
     Active Substance: ADALIMUMAB
     Indication: RETINAL VASCULITIS
     Dosage: 40 MILLIGRAM, Q2WK
     Route: 058
     Dates: start: 202003, end: 20200725
  4. CORTANCYL [Suspect]
     Active Substance: PREDNISONE
     Indication: RETINAL VASCULITIS
     Dosage: 16 MILLIGRAM, QD
     Route: 048
     Dates: start: 202001

REACTIONS (2)
  - Drug interaction [Recovering/Resolving]
  - Disseminated tuberculosis [Recovering/Resolving]

NARRATIVE: CASE EVENT DATE: 202007
